FAERS Safety Report 8280311-2 (Version None)
Quarter: 2012Q2

REPORT INFORMATION
  Report Type: 
  Country: None (occurrence: None)
  Receive Date: 20120412
  Receipt Date: 20120123
  Transmission Date: 20120825
  Serious: No
  Sender: FDA-Public Use
  Company Number: US-ASTRAZENECA-2012SE05106

PATIENT
  Sex: Male

DRUGS (3)
  1. ANTIHYPERTENSIVE MEDICATIONS [Concomitant]
  2. NEXIUM [Suspect]
     Indication: OBSTRUCTION GASTRIC
     Route: 048
  3. NERVE PILLS [Concomitant]

REACTIONS (2)
  - GASTROOESOPHAGEAL REFLUX DISEASE [None]
  - OFF LABEL USE [None]
